FAERS Safety Report 14695229 (Version 1)
Quarter: 2018Q1

REPORT INFORMATION
  Report Type: Other
  Country: US (occurrence: US)
  Receive Date: 20180329
  Receipt Date: 20180329
  Transmission Date: 20180509
  Serious: Yes (Hospitalization)
  Sender: FDA-Public Use
  Company Number: US-ACORDA-ACO_148320_2018

PATIENT
  Age: 55 Year
  Sex: Female

DRUGS (1)
  1. AMPYRA [Suspect]
     Active Substance: DALFAMPRIDINE
     Indication: PRODUCT USED FOR UNKNOWN INDICATION
     Dosage: 10 MG, BID
     Route: 048

REACTIONS (6)
  - Diarrhoea [Unknown]
  - Memory impairment [Unknown]
  - Headache [Unknown]
  - Multiple sclerosis relapse [Unknown]
  - Hypotension [Unknown]
  - Muscular weakness [Unknown]

NARRATIVE: CASE EVENT DATE: 201712
